FAERS Safety Report 8394379-6 (Version None)
Quarter: 2012Q1

REPORT INFORMATION
  Report Type: 
  Country: None (occurrence: None)
  Receive Date: 20120323
  Receipt Date: 20110531
  Transmission Date: 20120608
  Serious: Yes (Other)
  Sender: FDA-Public Use
  Company Number: 163-21880-11050604

PATIENT
  Age: 83 Year
  Sex: Male
  Weight: 99.7913 kg

DRUGS (16)
  1. REVLIMID [Suspect]
  2. GLYBURIDE [Concomitant]
  3. ASPIRIN [Concomitant]
  4. COUMADIN [Concomitant]
  5. FLEETS (ALL OTHER THERAPEUTIC PRODUCTS) [Concomitant]
  6. AZO (AZITHROMYCIN) [Concomitant]
  7. ZITHROMAX [Concomitant]
  8. MIRALAX [Concomitant]
  9. REVLIMID [Suspect]
     Indication: MULTIPLE MYELOMA
     Dosage: 5 MG, DAILY FOR 14 DAYS OFF 14 DAYS, PO
     Route: 048
     Dates: start: 20100630, end: 20110420
  10. ATIVAN [Concomitant]
  11. MACROBID [Concomitant]
  12. FINASTERIDE [Concomitant]
  13. LISINOPRIL [Concomitant]
  14. VITAMIN D [Concomitant]
  15. ZOMETA [Concomitant]
  16. CEFTIN [Concomitant]

REACTIONS (3)
  - PLASMACYTOMA [None]
  - MULTIPLE MYELOMA [None]
  - DRUG INEFFECTIVE [None]
